FAERS Safety Report 23982129 (Version 3)
Quarter: 2024Q3

REPORT INFORMATION
  Report Type: Spontaneous
  Country: US (occurrence: US)
  Receive Date: 20240617
  Receipt Date: 20240702
  Transmission Date: 20241017
  Serious: Yes (Hospitalization, Other)
  Sender: BRISTOL MYERS SQUIBB
  Company Number: US-BRISTOL-MYERS SQUIBB COMPANY-2024-095256

PATIENT
  Age: 44 Year
  Sex: Male
  Weight: 84.82 kg

DRUGS (1)
  1. REVLIMID [Suspect]
     Active Substance: LENALIDOMIDE
     Indication: Hodgkin^s disease nodular sclerosis stage III
     Dosage: 3 WEEKS ON, 1 WEEK OFF?21D ON 7D OFF
     Route: 048
     Dates: start: 20240501

REACTIONS (5)
  - Pneumonia [Recovering/Resolving]
  - Hepatotoxicity [Not Recovered/Not Resolved]
  - Off label use [Unknown]
  - Fatigue [Unknown]
  - Failure to thrive [Unknown]
